FAERS Safety Report 8096474-8 (Version None)
Quarter: 2012Q1

REPORT INFORMATION
  Report Type: 
  Country: None (occurrence: None)
  Receive Date: 20120129
  Receipt Date: 20111208
  Transmission Date: 20120608
  Serious: No
  Sender: FDA-Public Use
  Company Number: US-ABBOTT-11P-163-0882298-00

PATIENT
  Age: 41 Year
  Sex: Female

DRUGS (10)
  1. PROPRANOLOL [Concomitant]
     Indication: PRODUCT USED FOR UNKNOWN INDICATION
     Route: 048
     Dates: start: 20111101
  2. VESICARE [Concomitant]
     Indication: INCONTINENCE
     Route: 048
  3. VYTORIN [Concomitant]
     Indication: BLOOD CHOLESTEROL INCREASED
     Dosage: 10/40MG
     Route: 048
  4. RANITIDINE [Concomitant]
     Indication: GASTROOESOPHAGEAL REFLUX DISEASE
     Route: 048
  5. HUMIRA [Suspect]
     Indication: PSORIATIC ARTHROPATHY
     Dates: start: 20110914
  6. ABILIFY [Concomitant]
     Indication: BIPOLAR DISORDER
     Route: 048
  7. METHOTREXATE [Concomitant]
     Indication: ARTHRITIS
     Route: 048
  8. HYDROCODONE BITARTRATE [Concomitant]
     Indication: ARTHRALGIA
     Dosage: 5/500MG
     Route: 048
     Dates: start: 20111116
  9. FOLIC ACID [Concomitant]
     Indication: ROUTINE HEALTH MAINTENANCE
     Route: 048
  10. AMBIEN [Concomitant]
     Indication: SLEEP DISORDER THERAPY
     Dates: start: 20111101

REACTIONS (2)
  - INJECTION SITE HAEMORRHAGE [None]
  - ANXIETY [None]
